FAERS Safety Report 7334094-0 (Version None)
Quarter: 2011Q1

REPORT INFORMATION
  Report Type: 
  Country: None (occurrence: None)
  Receive Date: 20110307
  Receipt Date: 20110225
  Transmission Date: 20110831
  Serious: Yes (Other)
  Sender: FDA-Public Use
  Company Number: US-AMGEN-USASP2011007096

PATIENT
  Age: 53 Year
  Sex: Female
  Weight: 74.83 kg

DRUGS (3)
  1. HUMIRA [Concomitant]
     Indication: PSORIATIC ARTHROPATHY
     Dosage: 40 MG, 2 TIMES/WK
     Route: 058
     Dates: start: 20050101, end: 20101215
  2. ENBREL [Suspect]
     Indication: PRODUCT USED FOR UNKNOWN INDICATION
  3. RIZATRIPTAN BENZOATE [Concomitant]

REACTIONS (8)
  - ANXIETY [None]
  - COUGH [None]
  - EAR INFECTION [None]
  - TYMPANIC MEMBRANE PERFORATION [None]
  - FEELING ABNORMAL [None]
  - SINUS CONGESTION [None]
  - PYREXIA [None]
  - TOOTH ABSCESS [None]
